FAERS Safety Report 10094468 (Version 2)
Quarter: 2014Q2

REPORT INFORMATION
  Report Type: Spontaneous
  Country: US (occurrence: US)
  Receive Date: 20140422
  Receipt Date: 20140430
  Transmission Date: 20141212
  Serious: No
  Sender: FDA-Public Use
  Company Number: US-009507513-1404USA001932

PATIENT
  Sex: Female

DRUGS (1)
  1. OXYTROL FOR WOMEN [Suspect]
     Indication: URGE INCONTINENCE
     Dosage: UNK, UNKNOWN
     Route: 062
     Dates: start: 20140210

REACTIONS (5)
  - Application site discomfort [Unknown]
  - Application site irritation [Unknown]
  - Application site erythema [Unknown]
  - Drug effect decreased [Unknown]
  - Product adhesion issue [Unknown]
